FAERS Safety Report 8215163-X (Version None)
Quarter: 2012Q1

REPORT INFORMATION
  Report Type: 
  Country: None (occurrence: None)
  Receive Date: 20120316
  Receipt Date: 20120302
  Transmission Date: 20120608
  Serious: Yes (Other)
  Sender: FDA-Public Use
  Company Number: AU-MYLANLABS-2012S1005020

PATIENT
  Age: 52 Year
  Sex: Female

DRUGS (21)
  1. PRAVASTATIN [Interacting]
     Dosage: 40MG
     Route: 065
  2. LOVASTATIN [Suspect]
     Route: 065
  3. INFLUENZA VIRUS VACCINE [Concomitant]
     Route: 065
  4. ATORVASTATIN [Interacting]
     Indication: BLOOD CHOLESTEROL INCREASED
     Dosage: SOMETIMES
     Route: 065
  5. PREMARIN [Interacting]
     Indication: MENOPAUSE
     Dosage: 0.625MG
     Route: 065
  6. CEPHALEXIN [Concomitant]
     Route: 065
  7. LEVOTHYROXINE SODIUM [Concomitant]
     Dosage: 100 MG/DAY
     Route: 065
  8. PAROXETINE HCL [Suspect]
     Indication: MENTAL DISORDER
     Dosage: UP TO 60 MG/DAY
     Route: 065
  9. IRBESARTAN [Interacting]
     Indication: HYPERTENSION
     Dosage: 300 MG/DAY
     Route: 065
  10. TENORMIN [Concomitant]
     Dosage: 12.5 MG/DAY
     Route: 065
  11. VALACICLOVIR [Concomitant]
     Indication: HERPES ZOSTER
     Route: 065
  12. DIAZEPAM [Concomitant]
     Dosage: 5MG AS NEEDED
     Route: 065
  13. CITALOPRAM HYDROBROMIDE [Interacting]
     Indication: MENTAL DISORDER
     Dosage: TITRATED TO 60 MG/DAY
     Route: 065
  14. FLUTICASONE PROPIONATE/SALMETEROL [Concomitant]
     Route: 065
  15. VENLAFAXINE [Interacting]
     Indication: MENTAL DISORDER
     Dosage: 300 MG/DAY
     Route: 065
  16. METOCLOPRAMIDE [Interacting]
     Dosage: INTERMITTENT, AS NEEDED
     Route: 065
  17. CELECOXIB [Interacting]
     Indication: SOMATOFORM DISORDER
     Dosage: 200MG AD LIB
     Route: 065
  18. SIMVASTATIN [Suspect]
     Route: 065
  19. ERYTHROMYCIN [Concomitant]
     Route: 065
  20. FLUOXETINE [Suspect]
     Indication: MENTAL DISORDER
     Route: 065
  21. TRAMADOL HCL [Interacting]
     Indication: SOMATOFORM DISORDER
     Dosage: AS NEEDED
     Route: 065

REACTIONS (4)
  - SUICIDAL IDEATION [None]
  - PHYSICAL ASSAULT [None]
  - DRUG INTERACTION [None]
  - AKATHISIA [None]
